FAERS Safety Report 5209188-6 (Version None)
Quarter: 2007Q1

REPORT INFORMATION
  Report Type: 
  Country: None (occurrence: None)
  Receive Date: 20070111
  Receipt Date: 20070103
  Transmission Date: 20070707
  Serious: Yes (Hospitalization, Other)
  Sender: FDA-Public Use
  Company Number: 2006-05-1903

PATIENT
  Age: 77 Year
  Sex: Female
  Weight: 98.8842 kg

DRUGS (17)
  1. TEMODAR [Suspect]
     Indication: METASTATIC MALIGNANT MELANOMA
     Dosage: SEE IMAGE
     Route: 048
     Dates: start: 20060426, end: 20060502
  2. TEMODAR [Suspect]
     Indication: METASTATIC MALIGNANT MELANOMA
     Dosage: SEE IMAGE
     Route: 048
     Dates: start: 20060510, end: 20060515
  3. TEMODAR [Suspect]
  4. TEMODAR [Suspect]
  5. SUTENT [Suspect]
     Indication: METASTATIC MALIGNANT MELANOMA
     Dosage: 25 MG; PO
     Route: 048
     Dates: start: 20060503, end: 20060521
  6. SKELAXIN [Concomitant]
  7. DIOVAN [Concomitant]
  8. CLARINEX [Concomitant]
  9. MOBIC [Concomitant]
  10. NEXIUM [Concomitant]
  11. INDAPAMIDE [Concomitant]
  12. PEPCID [Concomitant]
  13. QUININE [Concomitant]
  14. SEREVENT [Concomitant]
  15. AZMACORT [Concomitant]
  16. KEFLEX [Concomitant]
  17. ALEVE [Concomitant]

REACTIONS (31)
  - ANOREXIA [None]
  - ASTHENIA [None]
  - COLITIS [None]
  - CONDITION AGGRAVATED [None]
  - DEHYDRATION [None]
  - DIARRHOEA [None]
  - DIVERTICULUM INTESTINAL [None]
  - DRY MOUTH [None]
  - FATIGUE [None]
  - FEBRILE NEUTROPENIA [None]
  - GASTROOESOPHAGEAL REFLUX DISEASE [None]
  - HEPATIC LESION [None]
  - HYPOVOLAEMIA [None]
  - LOCALISED INFECTION [None]
  - LYMPHADENOPATHY [None]
  - LYMPHOEDEMA [None]
  - METASTASES TO LYMPH NODES [None]
  - MUCOSAL INFLAMMATION [None]
  - NAUSEA [None]
  - OESOPHAGEAL CANDIDIASIS [None]
  - PANCYTOPENIA [None]
  - PRODUCTIVE COUGH [None]
  - PYREXIA [None]
  - RENAL DISORDER [None]
  - RENAL FAILURE ACUTE [None]
  - SPLENIC LESION [None]
  - STOMATITIS [None]
  - THROMBOCYTOPENIA [None]
  - URINARY TRACT INFECTION [None]
  - VOMITING [None]
  - WEIGHT DECREASED [None]
